FAERS Safety Report 6053820-4 (Version None)
Quarter: 2009Q1

REPORT INFORMATION
  Report Type: 
  Country: None (occurrence: None)
  Receive Date: 20090127
  Receipt Date: 20081111
  Transmission Date: 20090719
  Serious: Yes (Other)
  Sender: FDA-Public Use
  Company Number: US-TEVA-180614USA

PATIENT
  Age: 38 Year
  Sex: Male

DRUGS (4)
  1. COPAXONE [Suspect]
     Indication: MULTIPLE SCLEROSIS
     Route: 058
     Dates: start: 20010501
  2. GABAPENTIN [Concomitant]
  3. SIMVASTATIN [Concomitant]
  4. ALLERGY SHOTS (NOS) [Concomitant]

REACTIONS (1)
  - LUNG ADENOCARCINOMA [None]
